FAERS Safety Report 5301934-6 (Version None)
Quarter: 2007Q2

REPORT INFORMATION
  Report Type: 
  Country: None (occurrence: None)
  Receive Date: 20070416
  Receipt Date: 20070416
  Transmission Date: 20071010
  Serious: Yes (Other)
  Sender: FDA-Public Use
  Company Number: None

PATIENT
  Age: 24 Year
  Sex: Male
  Weight: 80.7403 kg

DRUGS (1)
  1. CORICIDIN [Suspect]
     Indication: DEPENDENCE
     Dosage: 16 EVERY OTHER DAY PO
     Route: 048
     Dates: start: 20000820, end: 20070413

REACTIONS (1)
  - DRUG DEPENDENCE [None]
